FAERS Safety Report 5146472-9 (Version None)
Quarter: 2006Q4

REPORT INFORMATION
  Report Type: 
  Country: None (occurrence: None)
  Receive Date: 20061102
  Receipt Date: 20061027
  Transmission Date: 20070319
  Serious: Yes (Life-Threatening, Hospitalization, Other)
  Sender: FDA-Public Use
  Company Number: HQWYE344120OCT06

PATIENT
  Age: 67 Year
  Sex: Male
  Weight: 116.22 kg

DRUGS (12)
  1. RAPAMUNE [Suspect]
     Indication: PROPHYLAXIS AGAINST TRANSPLANT REJECTION
     Dates: start: 20021018, end: 20061006
  2. ALLOPURINOL [Concomitant]
  3. LEVOTHYROXINE SODIUM [Concomitant]
  4. LASIX [Concomitant]
  5. PROGRAF [Concomitant]
  6. NEURONTIN [Concomitant]
  7. SOTALOL HCL [Concomitant]
  8. GLIPIZIDE [Concomitant]
  9. PREDNISONE TAB [Concomitant]
  10. LIPITOR [Concomitant]
  11. AZATHIOPRINE [Concomitant]
  12. BACTRIM [Concomitant]

REACTIONS (12)
  - ARTERIOSCLEROSIS [None]
  - ATELECTASIS [None]
  - CARDIAC FAILURE CONGESTIVE [None]
  - CARDIAC TAMPONADE [None]
  - DEEP VEIN THROMBOSIS [None]
  - HAEMATURIA [None]
  - INCISION SITE COMPLICATION [None]
  - LUNG INFILTRATION [None]
  - LUNG NEOPLASM [None]
  - PLEURAL EFFUSION [None]
  - PULMONARY EMBOLISM [None]
  - SKIN OEDEMA [None]
